FAERS Safety Report 8906001 (Version 2)
Quarter: 2013Q1

REPORT INFORMATION
  Report Type: Spontaneous
  Country: US (occurrence: US)
  Receive Date: 20121111
  Receipt Date: 20130221
  Transmission Date: 20140127
  Serious: Yes (Hospitalization)
  Sender: FDA-Public Use
  Company Number: US-009507513-1211USA004224

PATIENT
  Sex: Male

DRUGS (2)
  1. PEGINTRON [Suspect]
     Indication: HEPATITIS C
     Dosage: 80 MICROGRAM, UNK
     Route: 058
     Dates: start: 201204
  2. RIBASPHERE [Suspect]

REACTIONS (2)
  - Anaemia [Recovered/Resolved]
  - Chest pain [Recovered/Resolved]
